FAERS Safety Report 6693776-4 (Version None)
Quarter: 2010Q2

REPORT INFORMATION
  Report Type: 
  Country: None (occurrence: None)
  Receive Date: 20100421
  Receipt Date: 20100409
  Transmission Date: 20101027
  Serious: Yes (Hospitalization)
  Sender: FDA-Public Use
  Company Number: 7001184

PATIENT
  Age: 11 Year
  Sex: Male

DRUGS (3)
  1. SAIZEN [Suspect]
     Indication: GROWTH HORMONE DEFICIENCY
     Dosage: 1.2 MG; 1.2 MG; 1.2 MG
     Dates: start: 20100217, end: 20100219
  2. SAIZEN [Suspect]
     Indication: GROWTH HORMONE DEFICIENCY
     Dosage: 1.2 MG; 1.2 MG; 1.2 MG
     Dates: start: 20100101
  3. SAIZEN [Suspect]
     Indication: GROWTH HORMONE DEFICIENCY
     Dosage: 1.2 MG; 1.2 MG; 1.2 MG
     Dates: start: 20100201

REACTIONS (3)
  - EAR INFECTION [None]
  - RESPIRATORY DISORDER [None]
  - WHEEZING [None]
